FAERS Safety Report 5311824-0 (Version None)
Quarter: 2007Q2

REPORT INFORMATION
  Report Type: 
  Country: None (occurrence: None)
  Receive Date: 20070430
  Receipt Date: 20060403
  Transmission Date: 20071010
  Serious: No
  Sender: FDA-Public Use
  Company Number: 2006UW03226

PATIENT
  Age: 796 Month
  Sex: Male
  Weight: 82.6 kg

DRUGS (7)
  1. NEXIUM [Suspect]
     Indication: GASTROOESOPHAGEAL REFLUX DISEASE
     Route: 048
     Dates: start: 20051101
  2. DETROL [Suspect]
  3. LISINOPRIL [Concomitant]
  4. ASPIRIN [Concomitant]
  5. NORVASC [Concomitant]
  6. LIPITOR [Concomitant]
  7. CLARINEX [Concomitant]

REACTIONS (2)
  - CYANOSIS [None]
  - RASH [None]
